FAERS Safety Report 24653970 (Version 2)
Quarter: 2025Q4

REPORT INFORMATION
  Report Type: Spontaneous
  Country: US (occurrence: US)
  Receive Date: 20241122
  Receipt Date: 20251231
  Transmission Date: 20260118
  Serious: No
  Sender: TRAVERE THERAPEUTICS
  Company Number: US-TRAVERE-2024TVT01196

PATIENT
  Sex: Female

DRUGS (2)
  1. FILSPARI [Suspect]
     Active Substance: SPARSENTAN
     Indication: IgA nephropathy
     Route: 048
  2. FILSPARI [Suspect]
     Active Substance: SPARSENTAN
     Dosage: EVERY OTHER DAY
     Route: 048

REACTIONS (3)
  - Hypotension [Unknown]
  - Anaemia [Unknown]
  - Off label use [Unknown]
